FAERS Safety Report 12428090 (Version 1)
Quarter: 2016Q2

REPORT INFORMATION
  Report Type: Spontaneous
  Country: US (occurrence: None)
  Receive Date: 20160601
  Receipt Date: 20160601
  Transmission Date: 20160815
  Serious: No
  Sender: FDA-Public Use
  Company Number: None

PATIENT

DRUGS (1)
  1. PHENTERMINE. [Suspect]
     Active Substance: PHENTERMINE

REACTIONS (2)
  - Feeling abnormal [None]
  - Anxiety [None]
